FAERS Safety Report 9622499 (Version 1)
Quarter: 2013Q4

REPORT INFORMATION
  Report Type: Spontaneous
  Country: US (occurrence: None)
  Receive Date: 20131010
  Receipt Date: 20131010
  Transmission Date: 20140711
  Serious: Yes (Hospitalization, Other)
  Sender: FDA-Public Use
  Company Number: 001602284A

PATIENT
  Age: 45 Year
  Sex: Female

DRUGS (3)
  1. SHEER COVER MINERAL FOUNDATION SPF 15 [Suspect]
     Dosage: DERMAL
     Dates: start: 200812, end: 2009
  2. SINGULAIR 10 MG [Concomitant]
  3. CLARITIN 10 MG [Concomitant]

REACTIONS (4)
  - Acne [None]
  - Abscess [None]
  - Scar [None]
  - Staphylococcal infection [None]
